FAERS Safety Report 7700300-3 (Version None)
Quarter: 2011Q3

REPORT INFORMATION
  Report Type: 
  Country: None (occurrence: None)
  Receive Date: 20110822
  Receipt Date: 20110809
  Transmission Date: 20111222
  Serious: Yes (Other)
  Sender: FDA-Public Use
  Company Number: PHEH2009US00536

PATIENT
  Sex: Female

DRUGS (4)
  1. ZOMETA [Suspect]
     Indication: BREAST CANCER METASTATIC
     Dosage: 4 MG, QMO
     Route: 042
     Dates: start: 20020401, end: 20060301
  2. AVASTIN [Concomitant]
  3. ABRAXANE [Concomitant]
  4. AREDIA [Suspect]
     Indication: BREAST CANCER METASTATIC
     Dosage: 90 MG, QMO
     Route: 042
     Dates: start: 20001201, end: 20020201

REACTIONS (5)
  - DYSPLASIA [None]
  - EXPOSED BONE IN JAW [None]
  - OROANTRAL FISTULA [None]
  - PURULENT DISCHARGE [None]
  - AORTIC BRUIT [None]
